FAERS Safety Report 14059172 (Version 1)
Quarter: 2017Q4

REPORT INFORMATION
  Report Type: Report from Study
  Country: US (occurrence: US)
  Receive Date: 20171006
  Receipt Date: 20171006
  Transmission Date: 20180321
  Serious: No
  Sender: FDA-Public Use
  Company Number: US-AMGEN-USASL2017028253

PATIENT
  Age: 83 Year
  Sex: Female

DRUGS (7)
  1. PROLIA [Suspect]
     Active Substance: DENOSUMAB
     Indication: OSTEOPOROSIS
  2. PROLIA [Suspect]
     Active Substance: DENOSUMAB
     Indication: ESSENTIAL HYPERTENSION
  3. PROLIA [Suspect]
     Active Substance: DENOSUMAB
     Indication: TYPE 2 DIABETES MELLITUS
     Dosage: UNK
     Route: 065
  4. PROLIA [Suspect]
     Active Substance: DENOSUMAB
     Indication: HYPERLIPIDAEMIA
  5. PROLIA [Suspect]
     Active Substance: DENOSUMAB
     Indication: HYPERGLYCAEMIA
  6. PROLIA [Suspect]
     Active Substance: DENOSUMAB
     Indication: CHRONIC KIDNEY DISEASE
  7. PROLIA [Suspect]
     Active Substance: DENOSUMAB
     Indication: HYPOTHYROIDISM

REACTIONS (1)
  - Off label use [Unknown]
